FAERS Safety Report 4579154-2 (Version None)
Quarter: 2005Q1

REPORT INFORMATION
  Report Type: 
  Country: None (occurrence: None)
  Receive Date: 20050208
  Receipt Date: 20050208
  Transmission Date: 20050727
  Serious: No
  Sender: FDA-Public Use
  Company Number: None

PATIENT
  Sex: Female
  Weight: 64.4108 kg

DRUGS (2)
  1. ROCEPHIN [Suspect]
     Indication: MENINGITIS
     Dosage: 2 GM IV QD
     Route: 042
     Dates: start: 20050117, end: 20050128
  2. ROCEPHIN [Suspect]

REACTIONS (3)
  - PRURITUS [None]
  - RASH MORBILLIFORM [None]
  - STOMATITIS [None]
